FAERS Safety Report 9179325 (Version 1)
Quarter: 2013Q1

REPORT INFORMATION
  Report Type: Report from Study
  Country: US (occurrence: US)
  Receive Date: 20130321
  Receipt Date: 20130321
  Transmission Date: 20140127
  Serious: Yes (Hospitalization, Other)
  Sender: FDA-Public Use
  Company Number: US-ROCHE-1203415

PATIENT
  Age: 57 Year
  Sex: Female
  Weight: 73.55 kg

DRUGS (6)
  1. ACTEMRA [Suspect]
     Indication: RHEUMATOID ARTHRITIS
     Dosage: DATE OF MOST RECENT DOSE BEFORE SAE: 22/FEB/2013
     Route: 042
     Dates: start: 20130222
  2. PREDNISONE [Suspect]
     Indication: RHEUMATOID ARTHRITIS
     Route: 048
     Dates: end: 20130304
  3. PREDNISONE [Suspect]
     Route: 048
     Dates: start: 20130304
  4. PRISTIQ [Concomitant]
     Indication: DEPRESSION
     Route: 065
  5. LAMICTAL [Concomitant]
     Indication: DEPRESSION
     Route: 065
  6. ATIVAN [Concomitant]
     Indication: DEPRESSION

REACTIONS (1)
  - Suicide attempt [Recovered/Resolved]
